APPROVED DRUG PRODUCT: ITRACONAZOLE
Active Ingredient: ITRACONAZOLE
Strength: 100MG
Dosage Form/Route: CAPSULE;ORAL
Application: A204672 | Product #001 | TE Code: AB
Applicant: ZYDUS PHARMACEUTICALS USA INC
Approved: Sep 19, 2017 | RLD: No | RS: No | Type: RX